FAERS Safety Report 14303835 (Version 1)
Quarter: 2017Q4

REPORT INFORMATION
  Report Type: Spontaneous
  Country: JP (occurrence: JP)
  Receive Date: 20171219
  Receipt Date: 20171219
  Transmission Date: 20180321
  Serious: Yes (Hospitalization, Other)
  Sender: FDA-Public Use
  Company Number: JP-OTSUKA-BMS-2016-023950

PATIENT
  Age: 35 Year
  Sex: Female

DRUGS (4)
  1. OPC-14597 [Suspect]
     Active Substance: CILOSTAZOL
     Dosage: 3 MG, QD
     Route: 048
     Dates: start: 201511, end: 20160201
  2. LAMOTRIGINE. [Suspect]
     Active Substance: LAMOTRIGINE
     Dosage: 25 MG, QD
     Route: 048
     Dates: start: 20160310
  3. OPC-14597 [Suspect]
     Active Substance: CILOSTAZOL
     Dosage: 12 MG, QD
     Route: 048
     Dates: start: 20160317, end: 20160318
  4. LAMOTRIGINE. [Suspect]
     Active Substance: LAMOTRIGINE
     Indication: BIPOLAR DISORDER
     Dosage: 100 MG, QD
     Route: 048
     Dates: start: 201511, end: 20160105

REACTIONS (4)
  - Maternal exposure during pregnancy [Recovered/Resolved]
  - Normal newborn [Unknown]
  - Bipolar disorder [Unknown]
  - Off label use [Unknown]
